FAERS Safety Report 5676664-1 (Version None)
Quarter: 2008Q1

REPORT INFORMATION
  Report Type: 
  Country: None (occurrence: None)
  Receive Date: 20080320
  Receipt Date: 20080320
  Transmission Date: 20080703
  Serious: Yes (Other)
  Sender: FDA-Public Use
  Company Number: None

PATIENT
  Sex: Male
  Weight: 54.4316 kg

DRUGS (5)
  1. XANAX [Suspect]
     Indication: GENERALISED ANXIETY DISORDER
     Dosage: 2MG USED PAST WEEK AND ALSO MANY YEARS AGO
  2. XANAX [Suspect]
     Indication: PANIC DISORDER
     Dosage: 2MG USED PAST WEEK AND ALSO MANY YEARS AGO
  3. TRAZODONE HCL [Concomitant]
  4. LORTAB [Concomitant]
  5. REMERON [Concomitant]

REACTIONS (2)
  - DRUG INEFFECTIVE [None]
  - THERAPEUTIC RESPONSE UNEXPECTED WITH DRUG SUBSTITUTION [None]
